FAERS Safety Report 9262517 (Version 1)
Quarter: 2013Q2

REPORT INFORMATION
  Report Type: Spontaneous
  Country: DE (occurrence: None)
  Receive Date: 20130426
  Receipt Date: 20130426
  Transmission Date: 20140414
  Serious: No
  Sender: FDA-Public Use
  Company Number: IPC201304-000145

PATIENT
  Sex: Female

DRUGS (2)
  1. METFORMIN HYDROCHLORIDE [Suspect]
     Indication: TYPE 2 DIABETES MELLITUS
     Dates: start: 201206, end: 20130304
  2. OMEPRAZOL TEVA [Suspect]
     Indication: ANAL FISSURE
     Dosage: 40MG ONCE A DAY
     Dates: start: 201206

REACTIONS (6)
  - Nausea [None]
  - Vomiting [None]
  - Muscle spasms [None]
  - Hypertension [None]
  - Drug ineffective [None]
  - Diarrhoea [None]
